FAERS Safety Report 9364665 (Version 2)
Quarter: 2013Q3

REPORT INFORMATION
  Report Type: Spontaneous
  Country: BR (occurrence: BR)
  Receive Date: 20130624
  Receipt Date: 20130707
  Transmission Date: 20140515
  Serious: Yes (Hospitalization, Other)
  Sender: FDA-Public Use
  Company Number: BR-009507513-2004-111620-NL

PATIENT
  Age: 25 Year
  Sex: Female
  Weight: 83 kg

DRUGS (2)
  1. IMPLANON [Suspect]
     Indication: CONTRACEPTION
     Dosage: UNK
     Route: 059
     Dates: start: 20021024, end: 200504
  2. IMPLANON [Suspect]
     Indication: MENSTRUAL CYCLE MANAGEMENT

REACTIONS (10)
  - Complication of delivery [Recovered/Resolved]
  - Appendicectomy [Recovered/Resolved]
  - Therapeutic response unexpected [Unknown]
  - Haemorrhage [Recovered/Resolved]
  - Ovulation pain [Not Recovered/Not Resolved]
  - Vaginal haemorrhage [Not Recovered/Not Resolved]
  - Amenorrhoea [Recovered/Resolved]
  - Menorrhagia [Recovered/Resolved]
  - Maternal exposure before pregnancy [Unknown]
  - Off label use [Unknown]
